FAERS Safety Report 8584704-5 (Version None)
Quarter: 2012Q3

REPORT INFORMATION
  Report Type: 
  Country: None (occurrence: None)
  Receive Date: 20120810
  Receipt Date: 20120731
  Transmission Date: 20120928
  Serious: Yes (Hospitalization)
  Sender: FDA-Public Use
  Company Number: US-BAYER-2012-078643

PATIENT
  Age: 21 Year
  Sex: Female
  Weight: 68.8 kg

DRUGS (3)
  1. YAZ [Suspect]
  2. TYLENOL [Concomitant]
  3. IBUPROFEN [Concomitant]
     Dosage: UNK UNK, PRN

REACTIONS (2)
  - PULMONARY EMBOLISM [None]
  - PULMONARY INFARCTION [None]
